FAERS Safety Report 11886403 (Version 2)
Quarter: 2016Q1

REPORT INFORMATION
  Report Type: Spontaneous
  Country: US (occurrence: US)
  Receive Date: 20160104
  Receipt Date: 20160105
  Transmission Date: 20160526
  Serious: Yes (Other)
  Sender: FDA-Public Use
  Company Number: US-PFIZER INC-2015465516

PATIENT
  Age: 90 Year
  Sex: Female
  Weight: 49 kg

DRUGS (3)
  1. WARFARIN [Concomitant]
     Active Substance: WARFARIN
     Indication: THROMBOSIS
     Dosage: 2.5 MG, 1X/DAY
     Route: 048
  2. TIKOSYN [Suspect]
     Active Substance: DOFETILIDE
     Dosage: 250 UG, 2X/DAY
     Route: 048
     Dates: start: 20151216
  3. CLINDAMYCIN PHOSPHATE. [Suspect]
     Active Substance: CLINDAMYCIN PHOSPHATE
     Indication: INFECTION
     Dosage: 250 MG, 3X/DAY
     Route: 048
     Dates: start: 20151221

REACTIONS (3)
  - Atrial fibrillation [Unknown]
  - Localised infection [Unknown]
  - Stevens-Johnson syndrome [Unknown]
